FAERS Safety Report 4512066-9 (Version None)
Quarter: 2004Q4

REPORT INFORMATION
  Report Type: 
  Country: None (occurrence: None)
  Receive Date: 20041123
  Receipt Date: 20041112
  Transmission Date: 20050328
  Serious: Yes (Hospitalization, Disabling)
  Sender: FDA-Public Use
  Company Number: GRWYE198912NOV04

PATIENT
  Age: 55 Year
  Sex: Female

DRUGS (5)
  1. EFFEXOR XR [Suspect]
     Indication: DEPRESSION
     Dosage: 150 MG 1X PER 1 DAY, ORAL
     Route: 048
     Dates: start: 20040601, end: 20040801
  2. CITALOPRAM HYDROBROMIDE [Concomitant]
  3. TAVOR (LORAZEPAM) [Concomitant]
  4. DOGMATYL (SULPIRIDE) [Concomitant]
  5. HERCEPTIN [Concomitant]

REACTIONS (2)
  - CEREBROVASCULAR ACCIDENT [None]
  - VISUAL ACUITY REDUCED [None]
